FAERS Safety Report 4822854-7 (Version None)
Quarter: 2005Q4

REPORT INFORMATION
  Report Type: 
  Country: None (occurrence: None)
  Receive Date: 20051104
  Receipt Date: 20051026
  Transmission Date: 20060501
  Serious: Yes (Other)
  Sender: FDA-Public Use
  Company Number: 2005147380

PATIENT
  Sex: Female
  Weight: 72.5755 kg

DRUGS (5)
  1. BEXTRA [Suspect]
     Indication: ARTHRITIS
     Dosage: 10 MG (10 MG, 2 IN 1 D)
     Dates: start: 20010101
  2. BEXTRA [Suspect]
     Indication: KNEE ARTHROPLASTY
     Dosage: 10 MG (10 MG, 2 IN 1 D)
     Dates: start: 20010101
  3. CELEBREX [Suspect]
     Indication: KNEE ARTHROPLASTY
     Dates: start: 20010101, end: 20010101
  4. TYLENOL [Suspect]
     Indication: ARTHRITIS
  5. ALL OTHER THERAPEUTIC PRODUCTS [Concomitant]

REACTIONS (6)
  - ABDOMINAL DISTENSION [None]
  - FEELING ABNORMAL [None]
  - GASTROINTESTINAL DISORDER [None]
  - OEDEMA PERIPHERAL [None]
  - POLYMYALGIA [None]
  - THERAPEUTIC RESPONSE UNEXPECTED [None]
